FAERS Safety Report 9886150 (Version 4)
Quarter: 2014Q4

REPORT INFORMATION
  Report Type: Report from Study
  Country: FR (occurrence: FR)
  Receive Date: 20140210
  Receipt Date: 20141205
  Transmission Date: 20150529
  Serious: Yes (Hospitalization)
  Sender: FDA-Public Use
  Company Number: PHHY2014FR012433

PATIENT
  Age: 74 Year
  Sex: Male
  Weight: 55 kg

DRUGS (7)
  1. CORTANCYL [Suspect]
     Active Substance: PREDNISONE
     Indication: RENAL TRANSPLANT
     Dosage: 10 MG, UNK
     Route: 065
     Dates: start: 20130727
  2. ADVAGRAF [Suspect]
     Active Substance: TACROLIMUS
     Dosage: DECREASED DOSE
     Route: 065
  3. ADVAGRAF [Suspect]
     Active Substance: TACROLIMUS
     Dosage: 2 MG, BETWEEN 20 AND 27 DEC 2013
     Route: 065
     Dates: end: 20140107
  4. ADVAGRAF [Suspect]
     Active Substance: TACROLIMUS
     Indication: RENAL TRANSPLANT
     Dosage: 6 MG, UNK
     Route: 065
     Dates: start: 20130727
  5. ADVAGRAF [Suspect]
     Active Substance: TACROLIMUS
     Dosage: 2 MG, QD
     Route: 065
     Dates: start: 20140115
  6. MYCOPHENOLIC ACID. [Suspect]
     Active Substance: MYCOPHENOLIC ACID
     Indication: RENAL TRANSPLANT
     Dosage: 720 MG, QD
     Route: 065
     Dates: start: 20130727, end: 20131017
  7. ADVAGRAF [Suspect]
     Active Substance: TACROLIMUS
     Dosage: 3 MG, QD
     Route: 065
     Dates: start: 20140107, end: 20140115

REACTIONS (29)
  - Phlebitis [Unknown]
  - Bile duct stone [Recovered/Resolved]
  - Arthralgia [Unknown]
  - Inflammatory pain [Unknown]
  - Pain [Unknown]
  - Klebsiella infection [Recovered/Resolved]
  - Arthritis [Recovered/Resolved]
  - Movement disorder [Unknown]
  - Erythema [Unknown]
  - Swelling [Unknown]
  - Abscess [Recovering/Resolving]
  - Cholestasis [Recovered/Resolved]
  - Urinary tract infection fungal [Unknown]
  - Cholelithiasis [Recovered/Resolved]
  - Candida infection [Unknown]
  - Osteolysis [Unknown]
  - Jaundice [Recovered/Resolved]
  - Haemorrhage [Recovered/Resolved]
  - Hepatocellular injury [Unknown]
  - Mycobacterium chelonae infection [Unknown]
  - Polyomavirus-associated nephropathy [Not Recovered/Not Resolved]
  - Dilatation intrahepatic duct acquired [Unknown]
  - Inflammation [Unknown]
  - Bone erosion [Unknown]
  - Bacillus infection [Recovered/Resolved]
  - Gastrointestinal haemorrhage [Recovered/Resolved]
  - Monarthritis [Recovered/Resolved]
  - Deep vein thrombosis [Recovering/Resolving]
  - Muscle haemorrhage [Recovered/Resolved]

NARRATIVE: CASE EVENT DATE: 20131010
